FAERS Safety Report 9602853 (Version 2)
Quarter: 2013Q4

REPORT INFORMATION
  Report Type: Spontaneous
  Country: JP (occurrence: JP)
  Receive Date: 20131007
  Receipt Date: 20131007
  Transmission Date: 20140711
  Serious: Yes (Other)
  Sender: FDA-Public Use
  Company Number: JP-ABBVIE-13P-087-1083164-00

PATIENT
  Age: 36 Year
  Sex: Male
  Weight: 85 kg

DRUGS (2)
  1. ULTANE [Suspect]
     Indication: ANAESTHESIA
     Dosage: 4.0%, 2.0-2.5%
     Route: 055
     Dates: start: 20110626, end: 20110626
  2. PROPOFOL [Concomitant]
     Indication: ANAESTHESIA
     Route: 042
     Dates: start: 20110627, end: 20110627

REACTIONS (3)
  - Hyperthermia malignant [Recovering/Resolving]
  - Myalgia [Recovering/Resolving]
  - Myoglobin urine present [Recovering/Resolving]
